FAERS Safety Report 9238034 (Version 1)
Quarter: 2013Q2

REPORT INFORMATION
  Report Type: Spontaneous
  Country: US (occurrence: None)
  Receive Date: 20130408
  Receipt Date: 20130408
  Transmission Date: 20140414
  Serious: Yes (Hospitalization, Disabling, Other)
  Sender: FDA-Public Use
  Company Number: 2013PROUSA02689

PATIENT
  Age: 88 Year
  Sex: Male
  Weight: 53.1 kg

DRUGS (16)
  1. PROVENGE (SIPULEUCEL-T) SUSPENSION [Suspect]
     Indication: PROSTATE CANCER METASTATIC
     Route: 042
     Dates: start: 20120525, end: 20120525
  2. FLOMAX (TAMSULOSIN HYDROCHLORIDE) [Concomitant]
  3. ZOCOR (SIMVASTATIN) [Concomitant]
  4. CASODEX (BICALUTAMIDE) [Concomitant]
  5. HYDROCHLOROTHIAZIDE (HYDROCHLOROTHIAZIDE) [Concomitant]
  6. PRINIVIL (LISINOPRIL DIHYDRATE) [Concomitant]
  7. TYLENOL EXTRA STRENGTH (PARACETAMOL) [Concomitant]
  8. DEXAMETHASONE (DEXAMETHASONE) [Concomitant]
  9. XGEVA (DENOSUMAB) [Concomitant]
  10. PERCOCET [Concomitant]
  11. NORCO (HYDROCODCONE BITARTRATE, PARACETAMOL) [Concomitant]
  12. ZOFRAN (ONDANSETRON HYDROCHLORIDE) [Concomitant]
  13. ASPIRIN (ACETYLSALICYLIC ACID) [Concomitant]
  14. ULTRAM (TRAMADOL HYDROCHLORIDE) [Concomitant]
  15. ZANTAC (RANITIDINE HYDROCHLORIDE) [Concomitant]
  16. HYDROCHLOROTHIAZIDE W/LISINOPRIL (HYDROCHLOROTHIAZIDE W/LISINOPRIL) [Concomitant]

REACTIONS (9)
  - Cerebrovascular accident [None]
  - Contusion [None]
  - Joint injury [None]
  - Fall [None]
  - Dizziness [None]
  - Dizziness [None]
  - Nausea [None]
  - Vomiting [None]
  - Dysarthria [None]
